FAERS Safety Report 16137134 (Version 8)
Quarter: 2019Q4

REPORT INFORMATION
  Report Type: Report from Study
  Country: US (occurrence: US)
  Receive Date: 20190329
  Receipt Date: 20191220
  Transmission Date: 20200122
  Serious: Yes (Death, Other)
  Sender: FDA-Public Use
  Company Number: PHHY2019US070196

PATIENT
  Sex: Male
  Weight: 71 kg

DRUGS (6)
  1. ACETAMINOPHEN. [Concomitant]
     Active Substance: ACETAMINOPHEN
     Indication: PROPHYLAXIS
     Dosage: 650 MG, UNK
     Route: 048
     Dates: start: 20180723, end: 20180723
  2. FLUDARABINE [Concomitant]
     Active Substance: FLUDARABINE PHOSPHATE
     Indication: CHEMOTHERAPY
     Dosage: UNK
     Route: 065
  3. KYMRIAH [Suspect]
     Active Substance: TISAGENLECLEUCEL
     Indication: DIFFUSE LARGE B-CELL LYMPHOMA REFRACTORY
     Dosage: 1 BAG, ONCE/SINGLE
     Route: 042
     Dates: start: 20180723
  4. KYMRIAH [Suspect]
     Active Substance: TISAGENLECLEUCEL
     Dosage: UNK
     Route: 041
     Dates: start: 2019
  5. CYCLOPHOSPHAMIDE. [Concomitant]
     Active Substance: CYCLOPHOSPHAMIDE
     Indication: CHEMOTHERAPY
     Dosage: UNK
     Route: 065
  6. DIPHENHYDRAMINE. [Concomitant]
     Active Substance: DIPHENHYDRAMINE
     Indication: PROPHYLAXIS
     Dosage: 12.5 MG, UNK
     Route: 065
     Dates: start: 20180723, end: 20180723

REACTIONS (12)
  - Malignant neoplasm progression [Fatal]
  - Platelet count decreased [Recovered/Resolved]
  - Viral sinusitis [Unknown]
  - Rhinovirus infection [Unknown]
  - Lymphocyte count decreased [Recovered/Resolved]
  - Pyrexia [Unknown]
  - Diffuse large B-cell lymphoma [Fatal]
  - Cytokine release syndrome [Recovered/Resolved]
  - Haemoglobin decreased [Unknown]
  - Hypogammaglobulinaemia [Recovered/Resolved]
  - Viral upper respiratory tract infection [Unknown]
  - Haematocrit decreased [Unknown]
